FAERS Safety Report 13277169 (Version 5)
Quarter: 2018Q1

REPORT INFORMATION
  Report Type: Report from Study
  Country: JP (occurrence: JP)
  Receive Date: 20170228
  Receipt Date: 20180102
  Transmission Date: 20180508
  Serious: Yes (Hospitalization)
  Sender: FDA-Public Use
  Company Number: JP-ACTELION-A-CH2017-150095

PATIENT
  Age: 21 Year
  Sex: Male

DRUGS (16)
  1. EPOPROSTENOL ACT [Suspect]
     Active Substance: EPOPROSTENOL
     Indication: PULMONARY ARTERIAL HYPERTENSION
     Dosage: 45 NG/KG, PER MIN
     Route: 042
     Dates: start: 20161201, end: 20170208
  2. EPOPROSTENOL ACT [Suspect]
     Active Substance: EPOPROSTENOL
     Dosage: 67 NG/KG, PER MIN
     Route: 042
     Dates: start: 20151024
  3. EPOPROSTENOL ACT [Suspect]
     Active Substance: EPOPROSTENOL
     Dosage: 69 NG/KG, PER MIN
     Route: 042
     Dates: start: 20151105
  4. TADALAFIL [Concomitant]
     Active Substance: TADALAFIL
  5. EPOPROSTENOL ACT [Suspect]
     Active Substance: EPOPROSTENOL
     Dosage: 40 NG/KG, PER MIN
     Route: 042
     Dates: start: 20141217
  6. EPOPROSTENOL ACT [Suspect]
     Active Substance: EPOPROSTENOL
     Dosage: 58 NG/KG, PER MIN
     Route: 042
     Dates: start: 20150919
  7. TRACLEER [Concomitant]
     Active Substance: BOSENTAN
  8. EPOPROSTENOL ACT [Suspect]
     Active Substance: EPOPROSTENOL
     Dosage: 53 NG/KG, PER MIN
     Route: 042
     Dates: start: 20150718
  9. TRACLEER [Concomitant]
     Active Substance: BOSENTAN
  10. EPOPROSTENOL ACT [Suspect]
     Active Substance: EPOPROSTENOL
     Dosage: 46 NG/KG, PER MIN
     Route: 042
     Dates: start: 20150613
  11. EPOPROSTENOL ACT [Suspect]
     Active Substance: EPOPROSTENOL
     Dosage: 59 NG/KG, PER MIN
     Route: 042
     Dates: start: 20150815
  12. EPOPROSTENOL ACT [Suspect]
     Active Substance: EPOPROSTENOL
     Dosage: 78 NG/KG, PER MIN
     Route: 042
     Dates: start: 20151205
  13. AZOSEMIDE [Concomitant]
     Active Substance: AZOSEMIDE
  14. SILDENAFIL CITRATE. [Concomitant]
     Active Substance: SILDENAFIL CITRATE
  15. EPOPROSTENOL ACT [Suspect]
     Active Substance: EPOPROSTENOL
     Dosage: 69 NG/KG, PER MIN
     Route: 042
     Dates: start: 20161017
  16. EPOPROSTENOL ACT [Suspect]
     Active Substance: EPOPROSTENOL
     Dosage: 86.3 NG/KG, PER MIN
     Route: 042
     Dates: start: 20160107

REACTIONS (3)
  - Device occlusion [Recovered/Resolved]
  - Catheter management [Recovered/Resolved]
  - Product deposit [Recovered/Resolved]

NARRATIVE: CASE EVENT DATE: 20170207
